FAERS Safety Report 9127766 (Version 1)
Quarter: 2013Q1

REPORT INFORMATION
  Report Type: Spontaneous
  Country: US (occurrence: US)
  Receive Date: 20130228
  Receipt Date: 20130228
  Transmission Date: 20140127
  Serious: Yes (Other)
  Sender: FDA-Public Use
  Company Number: US-GLAXOSMITHKLINE-A0998568A

PATIENT
  Age: 12 Year
  Sex: Female

DRUGS (2)
  1. LAMICTAL [Suspect]
     Indication: PETIT MAL EPILEPSY
     Dosage: 250MG TWICE PER DAY
     Route: 048
  2. LAMICTAL XR [Concomitant]
     Indication: PETIT MAL EPILEPSY

REACTIONS (1)
  - Convulsion [Unknown]
